FAERS Safety Report 6019015-5 (Version None)
Quarter: 2008Q4

REPORT INFORMATION
  Report Type: 
  Country: None (occurrence: None)
  Receive Date: 20081221
  Receipt Date: 20081221
  Transmission Date: 20090506
  Serious: Yes (Other)
  Sender: FDA-Public Use
  Company Number: None

PATIENT
  Age: 57 Year
  Sex: Male
  Weight: 99.7913 kg

DRUGS (1)
  1. ZOLPIDEM [Suspect]
     Indication: INSOMNIA
     Dosage: ONCE NIGHTLY OTHER
     Route: 050
     Dates: start: 20081105, end: 20081217

REACTIONS (3)
  - ABNORMAL SLEEP-RELATED EVENT [None]
  - AMNESIA [None]
  - VIOLENCE-RELATED SYMPTOM [None]
